FAERS Safety Report 9837022 (Version 1)
Quarter: 2014Q1

REPORT INFORMATION
  Report Type: Spontaneous
  Country: AU (occurrence: AU)
  Receive Date: 20140123
  Receipt Date: 20140123
  Transmission Date: 20141002
  Serious: Yes (Hospitalization, Other)
  Sender: FDA-Public Use
  Company Number: AU-BAYER-2014-007687

PATIENT
  Age: 48 Year
  Sex: Female

DRUGS (1)
  1. YASMIN [Suspect]
     Indication: MENORRHAGIA
     Route: 048

REACTIONS (10)
  - Off label use [None]
  - Pulmonary embolism [None]
  - Dyspnoea [None]
  - Deep vein thrombosis [None]
  - Groin pain [None]
  - Contusion [None]
  - Fall [None]
  - Muscle spasms [None]
  - Gait disturbance [None]
  - Pain in extremity [None]
